FAERS Safety Report 9936963 (Version 1)
Quarter: 2014Q1

REPORT INFORMATION
  Report Type: Spontaneous
  Country: US (occurrence: None)
  Receive Date: 20140115
  Receipt Date: 20140115
  Transmission Date: 20141002
  Serious: No
  Sender: FDA-Public Use
  Company Number: 2013US002560

PATIENT
  Age: 77 Year
  Sex: Male
  Weight: 82 kg

DRUGS (5)
  1. ICLUSIG [Suspect]
     Indication: CHRONIC MYELOID LEUKAEMIA
     Route: 048
     Dates: start: 20130915, end: 20130917
  2. FINASTERIDE (FINASTERIDE) [Concomitant]
  3. LISINOPRIL (LISINOPRIL) [Concomitant]
  4. ASPIRIN (ASPIRIN) [Concomitant]
  5. STATIN (TIABENAZOLE) [Concomitant]

REACTIONS (2)
  - Influenza [None]
  - Nausea [None]
